FAERS Safety Report 5082779-1 (Version None)
Quarter: 2006Q3

REPORT INFORMATION
  Report Type: 
  Country: None (occurrence: None)
  Receive Date: 20060814
  Receipt Date: 20060525
  Transmission Date: 20061208
  Serious: Yes (Other)
  Sender: FDA-Public Use
  Company Number: 2006030419

PATIENT
  Age: 76 Year
  Sex: Female

DRUGS (1)
  1. BEXTRA [Suspect]
     Dosage: 20 MG (10 MG, 2 IN 1 D)
     Dates: start: 20020327

REACTIONS (6)
  - CELLULITIS [None]
  - DERMATITIS CONTACT [None]
  - DISEASE RECURRENCE [None]
  - IDIOPATHIC URTICARIA [None]
  - RASH PRURITIC [None]
  - STEVENS-JOHNSON SYNDROME [None]
